FAERS Safety Report 23795523 (Version 1)
Quarter: 2024Q2

REPORT INFORMATION
  Report Type: Spontaneous
  Country: ID (occurrence: ID)
  Receive Date: 20240429
  Receipt Date: 20240429
  Transmission Date: 20240716
  Serious: Yes (Hospitalization, Other)
  Sender: FDA-Public Use
  Company Number: ID-MYLANLABS-2024M1035760

PATIENT
  Sex: Female
  Weight: 3.2 kg

DRUGS (3)
  1. SILDENAFIL [Suspect]
     Active Substance: SILDENAFIL
     Indication: Pulmonary hypertension
     Dosage: 0.7 MILLIGRAM/KILOGRAM, Q8H
     Route: 065
  2. SILDENAFIL [Suspect]
     Active Substance: SILDENAFIL
     Dosage: 0.8 MILLIGRAM/KILOGRAM (3X3MG (0.8 MG/KG/TIMES)
     Route: 065
  3. SILDENAFIL [Suspect]
     Active Substance: SILDENAFIL
     Dosage: 1.5 MILLIGRAM/KILOGRAM (3X5 MG (1.5 MG/KG/TIME)
     Route: 065

REACTIONS (1)
  - Neonatal respiratory distress syndrome [Unknown]
